FAERS Safety Report 18044803 (Version 11)
Quarter: 2023Q4

REPORT INFORMATION
  Report Type: Report from Study
  Country: US (occurrence: US)
  Receive Date: 20200720
  Receipt Date: 20231016
  Transmission Date: 20240109
  Serious: Yes (Other)
  Sender: FDA-Public Use
  Company Number: US-GLAXOSMITHKLINE-US2020AMR045052

PATIENT

DRUGS (13)
  1. NIRAPARIB [Suspect]
     Active Substance: NIRAPARIB
     Indication: Ovarian cancer
     Dosage: 200 MG, QD
     Dates: start: 20200228
  2. NIRAPARIB [Suspect]
     Active Substance: NIRAPARIB
     Dosage: 200 MG, QD
     Dates: start: 20200304, end: 20200306
  3. NIRAPARIB [Suspect]
     Active Substance: NIRAPARIB
     Dosage: 100 MG, QD
     Dates: start: 20200313
  4. NIRAPARIB [Suspect]
     Active Substance: NIRAPARIB
     Dosage: 100 MG, QD
  5. NIRAPARIB [Suspect]
     Active Substance: NIRAPARIB
     Dosage: 100 MG, QD
     Dates: start: 20200801
  6. NIRAPARIB [Suspect]
     Active Substance: NIRAPARIB
     Dosage: 100 MG, QD PM WITH SNACK
  7. NIRAPARIB [Suspect]
     Active Substance: NIRAPARIB
     Dosage: 100 MG, QD
  8. NIRAPARIB [Suspect]
     Active Substance: NIRAPARIB
     Dosage: 100 MG, QD AM WITH SNACK
     Route: 048
  9. NIRAPARIB [Suspect]
     Active Substance: NIRAPARIB
     Dosage: 100 MG, QD (100MG DAILY AM WITH SNACK)
     Route: 048
  10. NIRAPARIB [Suspect]
     Active Substance: NIRAPARIB
     Dosage: 100 MG, QD (100MG DAILY AM WITH SNACK)
     Route: 048
  11. NIRAPARIB [Suspect]
     Active Substance: NIRAPARIB
     Dosage: 100 MG, QD
  12. NIRAPARIB [Suspect]
     Active Substance: NIRAPARIB
     Indication: Ovarian cancer
     Dosage: 100 MG, QD
     Route: 048
  13. XARELTO [Concomitant]
     Active Substance: RIVAROXABAN
     Indication: Product used for unknown indication
     Dosage: UNK

REACTIONS (30)
  - Renal impairment [Unknown]
  - Fatigue [Not Recovered/Not Resolved]
  - Blood pressure increased [Recovered/Resolved]
  - Insomnia [Not Recovered/Not Resolved]
  - Renal function test abnormal [Recovered/Resolved]
  - Constipation [Not Recovered/Not Resolved]
  - Decreased appetite [Recovered/Resolved]
  - Odynophagia [Recovered/Resolved]
  - Lymphadenopathy [Recovered/Resolved]
  - Condition aggravated [Unknown]
  - Headache [Recovered/Resolved]
  - Sinus congestion [Recovered/Resolved]
  - Chills [Recovered/Resolved]
  - Pyrexia [Recovered/Resolved]
  - Sleep disorder [Not Recovered/Not Resolved]
  - Muscular weakness [Not Recovered/Not Resolved]
  - Myalgia [Not Recovered/Not Resolved]
  - Platelet count decreased [Recovering/Resolving]
  - Pain in extremity [Unknown]
  - Onychoclasis [Unknown]
  - Arthralgia [Unknown]
  - COVID-19 [Not Recovered/Not Resolved]
  - Dizziness [Unknown]
  - Carpal tunnel syndrome [Recovered/Resolved]
  - Inflammation [Unknown]
  - Pain [Unknown]
  - Memory impairment [Unknown]
  - Off label use [Recovered/Resolved]
  - Drug monitoring procedure not performed [Unknown]
  - Product dose omission issue [Unknown]

NARRATIVE: CASE EVENT DATE: 20220810
